FAERS Safety Report 10549368 (Version 6)
Quarter: 2016Q1

REPORT INFORMATION
  Report Type: Spontaneous
  Country: US (occurrence: US)
  Receive Date: 20141028
  Receipt Date: 20160129
  Transmission Date: 20160525
  Serious: Yes (Hospitalization, Other)
  Sender: FDA-Public Use
  Company Number: US-BAYER-2014-158646

PATIENT
  Age: 32 Year
  Sex: Female
  Weight: 57.14 kg

DRUGS (1)
  1. MIRENA [Suspect]
     Active Substance: LEVONORGESTREL
     Indication: CONTRACEPTION
     Dosage: 20 MCG/24HR, CONT
     Route: 015
     Dates: start: 20110721, end: 20121101

REACTIONS (22)
  - Pyrexia [None]
  - Sleep disorder [None]
  - Stress [None]
  - Salpingo-oophorectomy [None]
  - Pelvic inflammatory disease [None]
  - Abdominal pain lower [Not Recovered/Not Resolved]
  - Device use error [None]
  - Depression [None]
  - Injury [Not Recovered/Not Resolved]
  - Chills [None]
  - Ovarian cyst [None]
  - Device issue [None]
  - Uterine perforation [Not Recovered/Not Resolved]
  - Genital haemorrhage [None]
  - Marital problem [None]
  - Emotional distress [None]
  - Appendicectomy [None]
  - Hormone level abnormal [None]
  - Sexual dysfunction [None]
  - Genital haemorrhage [None]
  - Pain [Not Recovered/Not Resolved]
  - Anxiety [None]

NARRATIVE: CASE EVENT DATE: 201107
